FAERS Safety Report 25954654 (Version 1)
Quarter: 2025Q4

REPORT INFORMATION
  Report Type: Spontaneous
  Country: IR (occurrence: IR)
  Receive Date: 20251024
  Receipt Date: 20251024
  Transmission Date: 20260118
  Serious: Yes (Other)
  Sender: STRIDES
  Company Number: IR-STRIDES ARCOLAB LIMITED-2025SP013272

PATIENT
  Age: 47 Year
  Sex: Female
  Weight: 64 kg

DRUGS (5)
  1. ACETAZOLAMIDE [Interacting]
     Active Substance: ACETAZOLAMIDE
     Indication: Intracranial pressure increased
     Dosage: 750 MILLIGRAM, QD
     Route: 065
     Dates: start: 2021
  2. ACETAZOLAMIDE [Interacting]
     Active Substance: ACETAZOLAMIDE
     Dosage: 250 MILLIGRAM, 0.5 PER DAY
     Route: 065
     Dates: start: 2021
  3. ACETAZOLAMIDE [Interacting]
     Active Substance: ACETAZOLAMIDE
     Dosage: DOSE INCREASED
     Route: 065
  4. ACETAZOLAMIDE [Interacting]
     Active Substance: ACETAZOLAMIDE
     Dosage: DOSE DECREASED
     Route: 065
  5. VALPROATE [Interacting]
     Active Substance: VALPROIC ACID
     Indication: Migraine
     Dosage: 200 MILLIGRAM, BID
     Route: 065
     Dates: start: 2021

REACTIONS (4)
  - Hyperammonaemia [Recovered/Resolved]
  - Encephalopathy [Recovered/Resolved]
  - Drug interaction [Recovered/Resolved]
  - Off label use [Unknown]

NARRATIVE: CASE EVENT DATE: 20210101
